FAERS Safety Report 6181568-4 (Version None)
Quarter: 2009Q2

REPORT INFORMATION
  Report Type: 
  Country: None (occurrence: None)
  Receive Date: 20090506
  Receipt Date: 20090428
  Transmission Date: 20091009
  Serious: Yes (Other)
  Sender: FDA-Public Use
  Company Number: US-JNJFOC-20090500201

PATIENT
  Age: 55 Year
  Sex: Female
  Weight: 86.18 kg

DRUGS (1)
  1. SIMPLY SLEEP NIGHTTIME [Suspect]
     Indication: SLEEP DISORDER THERAPY
     Dosage: ALMOST EVERY NIGHT AS NEEDED
     Route: 048

REACTIONS (2)
  - DEPENDENCE [None]
  - HEADACHE [None]
